FAERS Safety Report 18642907 (Version 1)
Quarter: 2020Q4

REPORT INFORMATION
  Report Type: Spontaneous
  Country: LT (occurrence: LT)
  Receive Date: 20201221
  Receipt Date: 20201221
  Transmission Date: 20210114
  Serious: Yes (Hospitalization, Other)
  Sender: FDA-Public Use
  Company Number: LT-NOVOPROD-774467

PATIENT
  Age: 56 Year
  Sex: Male

DRUGS (4)
  1. NOVOMIX 30 FLEXPEN [Suspect]
     Active Substance: INSULIN ASPART
     Dosage: 30U TWICE (MORNING AND EVENING)
     Route: 058
  2. NOVOMIX 30 FLEXPEN [Suspect]
     Active Substance: INSULIN ASPART
     Indication: TYPE 2 DIABETES MELLITUS
     Dosage: 12-14 U TWICE (MORNING AND EVENING)
     Route: 058
  3. NOVORAPID [Suspect]
     Active Substance: INSULIN ASPART
     Indication: TYPE 2 DIABETES MELLITUS
     Dosage: 4-6 U ONCE BEFORE LUNCH
     Route: 058
  4. METFORMIN [Suspect]
     Active Substance: METFORMIN HYDROCHLORIDE
     Indication: TYPE 2 DIABETES MELLITUS
     Dosage: 850 MG, BID
     Route: 048

REACTIONS (4)
  - Extra dose administered [Recovered/Resolved]
  - COVID-19 [Unknown]
  - Hypoglycaemic coma [Recovered/Resolved]
  - Glomerular filtration rate decreased [Unknown]
